FAERS Safety Report 9305114 (Version 1)
Quarter: 2013Q2

REPORT INFORMATION
  Report Type: Spontaneous
  Country: US (occurrence: None)
  Receive Date: 20130522
  Receipt Date: 20130522
  Transmission Date: 20140414
  Serious: Yes (Disabling)
  Sender: FDA-Public Use
  Company Number: None

PATIENT
  Age: 66 Year
  Sex: Female
  Weight: 95.71 kg

DRUGS (13)
  1. PRAVASTATIN [Suspect]
     Indication: BLOOD CHOLESTEROL
     Route: 048
     Dates: start: 20110604, end: 20130501
  2. METFORMIN [Concomitant]
  3. OMEPRAZOLE [Concomitant]
  4. HYDROCHLOROTHIAZIDE [Concomitant]
  5. LEVOTHYROXIN [Concomitant]
  6. LANTUS [Concomitant]
  7. HUMALOG [Concomitant]
  8. VITAMIN B [Suspect]
  9. ASPIRIN [Suspect]
  10. FOLIC ACID [Suspect]
  11. UNSPECIFIED INGREDIENT [Suspect]
  12. CALCIUM [Suspect]
  13. POTASSIUM [Suspect]

REACTIONS (2)
  - Glaucoma [None]
  - Osteopenia [None]
